FAERS Safety Report 24987342 (Version 1)
Quarter: 2025Q1

REPORT INFORMATION
  Report Type: Spontaneous
  Country: US (occurrence: US)
  Receive Date: 20250219
  Receipt Date: 20250219
  Transmission Date: 20250409
  Serious: No
  Sender: PFIZER
  Company Number: US-PFIZER INC-202500036190

PATIENT
  Age: 40 Year
  Sex: Male

DRUGS (1)
  1. CIBINQO [Suspect]
     Active Substance: ABROCITINIB
     Indication: Pruritus
     Dosage: 100 MG, 1X/DAY

REACTIONS (1)
  - Therapeutic product effect incomplete [Unknown]
